FAERS Safety Report 7200461-9 (Version None)
Quarter: 2010Q4

REPORT INFORMATION
  Report Type: 
  Country: None (occurrence: None)
  Receive Date: 20101215
  Receipt Date: 20101130
  Transmission Date: 20110411
  Serious: No
  Sender: FDA-Public Use
  Company Number: 2010-01028

PATIENT
  Age: 77 Year
  Sex: Male
  Weight: 74.8435 kg

DRUGS (6)
  1. ZICAM COLD REMEDY PLUS LIQUI-LOZ [Suspect]
     Dosage: Q 3 WAKING HRS X 1 DAY
     Dates: start: 20101129, end: 20101130
  2. SORIATANE [Concomitant]
  3. OMEPRAZOLE [Concomitant]
  4. MULTI-VITAMIN [Concomitant]
  5. ASPIRIN [Concomitant]
  6. VITAMIN B [Concomitant]

REACTIONS (1)
  - AGEUSIA [None]
